FAERS Safety Report 23332075 (Version 1)
Quarter: 2023Q4

REPORT INFORMATION
  Report Type: Spontaneous
  Country: US (occurrence: None)
  Receive Date: 20231219
  Receipt Date: 20231219
  Transmission Date: 20240110
  Serious: Yes (Death, Life-Threatening, Hospitalization, Disabling, Congenital Anomaly)
  Sender: FDA-Public Use
  Company Number: None

PATIENT
  Age: 4 Day
  Sex: Male
  Weight: 0.45 kg

DRUGS (1)
  1. CYMBALTA [Suspect]
     Active Substance: DULOXETINE HYDROCHLORIDE
     Indication: Depression
     Dates: start: 20101201

REACTIONS (4)
  - Maternal exposure during pregnancy [None]
  - Placenta praevia [None]
  - Premature rupture of membranes [None]
  - Premature delivery [None]

NARRATIVE: CASE EVENT DATE: 20141006
